FAERS Safety Report 6611916-X (Version None)
Quarter: 2010Q1

REPORT INFORMATION
  Report Type: 
  Country: None (occurrence: None)
  Receive Date: 20100303
  Receipt Date: 20100223
  Transmission Date: 20100710
  Serious: Yes (Other)
  Sender: FDA-Public Use
  Company Number: B0635370A

PATIENT
  Age: 36 Year
  Sex: Male
  Weight: 90 kg

DRUGS (1)
  1. NIQUITIN [Suspect]
     Route: 061
     Dates: start: 20100116, end: 20100116

REACTIONS (3)
  - DYSPNOEA [None]
  - HYPERHIDROSIS [None]
  - PERIPHERAL COLDNESS [None]
